FAERS Safety Report 15044872 (Version 2)
Quarter: 2018Q3

REPORT INFORMATION
  Report Type: Report from Study
  Country: PL (occurrence: PL)
  Receive Date: 20180621
  Receipt Date: 20180709
  Transmission Date: 20181010
  Serious: Yes (Hospitalization)
  Sender: FDA-Public Use
  Company Number: PHHO2018PL007395

PATIENT
  Age: 27 Year
  Sex: Male
  Weight: 84 kg

DRUGS (2)
  1. AIN457 [Suspect]
     Active Substance: SECUKINUMAB
     Indication: AXIAL SPONDYLOARTHRITIS
     Dosage: UNK
     Route: 058
     Dates: start: 20170714
  2. ACLEXA [Concomitant]
     Active Substance: CELECOXIB
     Indication: BACK PAIN
     Dosage: 400 MG, QD
     Route: 048
     Dates: start: 20170417, end: 20180517

REACTIONS (1)
  - Anal abscess [Recovered/Resolved with Sequelae]

NARRATIVE: CASE EVENT DATE: 20180613
